FAERS Safety Report 4577546-9 (Version None)
Quarter: 2005Q1

REPORT INFORMATION
  Report Type: 
  Country: None (occurrence: None)
  Receive Date: 20050127
  Receipt Date: 20040924
  Transmission Date: 20050727
  Serious: No
  Sender: FDA-Public Use
  Company Number: US_0410106254

PATIENT
  Age: 54 Year
  Sex: Female

DRUGS (3)
  1. STRATTERA [Suspect]
     Indication: ATTENTION DEFICIT/HYPERACTIVITY DISORDER
     Dosage: 60 MG/L DAY
     Dates: start: 20040914
  2. LIPITOR [Concomitant]
  3. EASPRIN (ACETYLSALICYLIC ACID) [Concomitant]

REACTIONS (5)
  - COLD SWEAT [None]
  - DECREASED APPETITE [None]
  - DEPRESSION [None]
  - DIZZINESS [None]
  - INSOMNIA [None]
